FAERS Safety Report 16381248 (Version 1)
Quarter: 2019Q2

REPORT INFORMATION
  Report Type: Spontaneous
  Country: JP (occurrence: JP)
  Receive Date: 20190603
  Receipt Date: 20190603
  Transmission Date: 20190711
  Serious: Yes (Other)
  Sender: FDA-Public Use
  Company Number: JP-ROCHE-2329694

PATIENT
  Age: 68 Year
  Sex: Female

DRUGS (2)
  1. TREAKISYM [Concomitant]
     Active Substance: BENDAMUSTINE HYDROCHLORIDE
     Route: 065
  2. GAZYVA [Suspect]
     Active Substance: OBINUTUZUMAB
     Indication: PRODUCT USED FOR UNKNOWN INDICATION
     Dosage: DATE OF MOST RECENT DOSE OF OBINUTUZUMAB : 22/MAY/2019
     Route: 042
     Dates: start: 20190227

REACTIONS (3)
  - Cytomegalovirus infection [Unknown]
  - Hepatic function abnormal [Unknown]
  - Neutrophil count decreased [Unknown]
